FAERS Safety Report 7606295-5 (Version None)
Quarter: 2011Q3

REPORT INFORMATION
  Report Type: 
  Country: None (occurrence: None)
  Receive Date: 20110713
  Receipt Date: 20110630
  Transmission Date: 20111222
  Serious: Yes (Life-Threatening, Hospitalization, Other)
  Sender: FDA-Public Use
  Company Number: US-BAYER-2011-017067

PATIENT
  Age: 45 Year
  Sex: Female
  Weight: 52.154 kg

DRUGS (5)
  1. HYOSCYAMINE [Concomitant]
  2. CLONAZEPAM [Concomitant]
  3. YASMIN [Suspect]
     Indication: CONTRACEPTION
     Route: 048
  4. YASMIN [Suspect]
     Indication: MENSTRUAL CYCLE MANAGEMENT
     Dosage: UNK
     Route: 048
     Dates: start: 20071001, end: 20080201
  5. NAPROXEN [Concomitant]

REACTIONS (6)
  - THROMBOSIS [None]
  - PAIN [None]
  - AORTIC EMBOLUS [None]
  - CEREBROVASCULAR ACCIDENT [None]
  - FATIGUE [None]
  - ANXIETY [None]
